FAERS Safety Report 8878955 (Version 2)
Quarter: 2014Q3

REPORT INFORMATION
  Report Type: Report from Study
  Country: US (occurrence: US)
  Receive Date: 20121026
  Receipt Date: 20140826
  Transmission Date: 20150326
  Serious: Yes (Other)
  Sender: FDA-Public Use
  Company Number: US-ROCHE-1132552

PATIENT
  Sex: Female

DRUGS (1)
  1. RITUXAN [Suspect]
     Active Substance: RITUXIMAB
     Indication: THROMBOCYTOPENIA
     Route: 042
     Dates: start: 20020201

REACTIONS (7)
  - Thrombocytopenia [Unknown]
  - Asthenia [Unknown]
  - Pyrexia [Unknown]
  - Confusional state [Unknown]
  - Off label use [Unknown]
  - Therapeutic response decreased [Unknown]
  - Lethargy [Unknown]
